FAERS Safety Report 6938337-4 (Version None)
Quarter: 2010Q3

REPORT INFORMATION
  Report Type: 
  Country: None (occurrence: None)
  Receive Date: 20100824
  Receipt Date: 20100812
  Transmission Date: 20110219
  Serious: Yes (Other)
  Sender: FDA-Public Use
  Company Number: US-PFIZER INC-2010081061

PATIENT
  Sex: Male

DRUGS (1)
  1. CHANTIX [Suspect]
     Indication: SMOKING CESSATION THERAPY
     Dosage: STARTER PACK AND MAINTENANCE PACK
     Dates: start: 20080401, end: 20080601

REACTIONS (12)
  - ANGER [None]
  - ANXIETY [None]
  - DEPRESSION [None]
  - DEREALISATION [None]
  - DISINHIBITION [None]
  - DYSPNOEA [None]
  - FATIGUE [None]
  - LOSS OF CONSCIOUSNESS [None]
  - PANIC ATTACK [None]
  - SELF INJURIOUS BEHAVIOUR [None]
  - SUICIDAL IDEATION [None]
  - VIOLENCE-RELATED SYMPTOM [None]
